FAERS Safety Report 11528597 (Version 3)
Quarter: 2015Q4

REPORT INFORMATION
  Report Type: Spontaneous
  Country: US (occurrence: US)
  Receive Date: 20150921
  Receipt Date: 20151127
  Transmission Date: 20160304
  Serious: Yes (Other)
  Sender: FDA-Public Use
  Company Number: US-ROCHE-1628629

PATIENT
  Sex: Female
  Weight: 71.28 kg

DRUGS (1)
  1. ESBRIET [Suspect]
     Active Substance: PIRFENIDONE
     Indication: IDIOPATHIC PULMONARY FIBROSIS
     Dosage: 3 CAPSULES THREE TIMES A DAY WITH FOOD
     Route: 048
     Dates: start: 20150827

REACTIONS (8)
  - Decreased appetite [Unknown]
  - Gastrooesophageal reflux disease [Unknown]
  - Rhinorrhoea [Unknown]
  - Dyspnoea [Unknown]
  - Cough [Unknown]
  - Atrial fibrillation [Unknown]
  - Sneezing [Unknown]
  - Nasopharyngitis [Unknown]
